FAERS Safety Report 4786883-4 (Version None)
Quarter: 2005Q3

REPORT INFORMATION
  Report Type: 
  Country: None (occurrence: None)
  Receive Date: 20050929
  Receipt Date: 20050929
  Transmission Date: 20060218
  Serious: Yes (Hospitalization, Disabling)
  Sender: FDA-Public Use
  Company Number: None

PATIENT
  Age: 36 Year
  Sex: Male
  Weight: 68.0396 kg

DRUGS (1)
  1. EPHEDRINE [Suspect]

REACTIONS (3)
  - ABNORMAL BEHAVIOUR [None]
  - INFECTION [None]
  - SPEECH DISORDER [None]
